FAERS Safety Report 5774292-0 (Version None)
Quarter: 2008Q2

REPORT INFORMATION
  Report Type: 
  Country: None (occurrence: None)
  Receive Date: 20080616
  Receipt Date: 20080605
  Transmission Date: 20081010
  Serious: Yes (Life-Threatening, Hospitalization)
  Sender: FDA-Public Use
  Company Number: GR-PFIZER INC-2006026000

PATIENT
  Sex: Male
  Weight: 108 kg

DRUGS (2)
  1. SU-011,248 [Suspect]
     Indication: RENAL CANCER METASTATIC
     Route: 048
  2. PLENDIL [Concomitant]
     Indication: HYPERTENSION
     Route: 048

REACTIONS (4)
  - BRAIN OEDEMA [None]
  - CEREBRAL HAEMORRHAGE [None]
  - DIZZINESS [None]
  - GAIT DISTURBANCE [None]
